FAERS Safety Report 4962678-3 (Version None)
Quarter: 2006Q1

REPORT INFORMATION
  Report Type: 
  Country: None (occurrence: None)
  Receive Date: 20060201
  Receipt Date: 20051023
  Transmission Date: 20060701
  Serious: No
  Sender: FDA-Public Use
  Company Number: 2005PV003986

PATIENT
  Age: 75 Year
  Sex: Female
  Weight: 111.5849 kg

DRUGS (10)
  1. BYETTA [Suspect]
     Indication: DIABETES MELLITUS NON-INSULIN-DEPENDENT
     Dosage: 5 MCG;BID;SC
     Route: 058
     Dates: start: 20050922
  2. AMARYL [Concomitant]
  3. ACTOS [Concomitant]
  4. PROPRANOLOL [Concomitant]
  5. ISOSORBIDE [Concomitant]
  6. PREMARIN [Concomitant]
  7. VITAMIN E [Concomitant]
  8. CYCLOBENZAPRINE HCL [Concomitant]
  9. LISINOPRIL [Concomitant]
  10. LEUCOVORIN [Concomitant]

REACTIONS (3)
  - ABDOMINAL PAIN UPPER [None]
  - DIARRHOEA [None]
  - NAUSEA [None]
